FAERS Safety Report 9432165 (Version 1)
Quarter: 2013Q3

REPORT INFORMATION
  Report Type: Spontaneous
  Country: US (occurrence: US)
  Receive Date: 20130731
  Receipt Date: 20130731
  Transmission Date: 20140515
  Serious: No
  Sender: FDA-Public Use
  Company Number: US-PFIZER INC-2013221972

PATIENT
  Age: 76 Year
  Sex: Female
  Weight: 72.6 kg

DRUGS (7)
  1. PRISTIQ [Suspect]
     Indication: DEPRESSION
     Dosage: 100 MG, DAILY
     Dates: start: 2009
  2. PRISTIQ [Suspect]
     Indication: ANXIETY
  3. PRISTIQ [Suspect]
     Indication: SLEEP DISORDER
  4. EFFEXOR [Suspect]
     Indication: DEPRESSION
     Dosage: UNK
     Dates: start: 200706
  5. EFFEXOR [Suspect]
     Dosage: 50 MG, 2X/DAY
     Dates: end: 2009
  6. SYNTHROID [Suspect]
     Indication: THYROID DISORDER
     Dosage: 88 MCG, DAILY
     Dates: start: 1980
  7. HYDROCODONE [Suspect]
     Indication: ARTHRITIS
     Dosage: UNK, 2X/DAY

REACTIONS (6)
  - Off label use [Unknown]
  - Drug ineffective [Unknown]
  - Malaise [Unknown]
  - Arthritis [Unknown]
  - Dizziness [Unknown]
  - Thyroid function test abnormal [Unknown]
